FAERS Safety Report 5665019-1 (Version None)
Quarter: 2008Q1

REPORT INFORMATION
  Report Type: 
  Country: None (occurrence: None)
  Receive Date: 20080314
  Receipt Date: 20080304
  Transmission Date: 20080703
  Serious: Yes (Other)
  Sender: FDA-Public Use
  Company Number: JP-PFIZER INC-2008020826

PATIENT
  Age: 67 Year

DRUGS (3)
  1. UNASYN [Suspect]
     Indication: PNEUMONIA
     Dosage: DAILY DOSE:6GRAM
     Route: 042
     Dates: start: 20080119, end: 20080125
  2. LOXONIN [Suspect]
  3. PANSPORIN [Suspect]
     Route: 042

REACTIONS (1)
  - PNEUMONIA [None]
